FAERS Safety Report 7980116-3 (Version None)
Quarter: 2011Q4

REPORT INFORMATION
  Report Type: 
  Country: None (occurrence: None)
  Receive Date: 20111214
  Receipt Date: 20111205
  Transmission Date: 20120403
  Serious: Yes (Life-Threatening, Hospitalization)
  Sender: FDA-Public Use
  Company Number: US-MERCK-1111USA01183

PATIENT
  Age: 8 Year
  Sex: Female

DRUGS (6)
  1. HYDROXYZINE [Concomitant]
     Indication: HYPERSENSITIVITY
     Route: 065
  2. LEVOTHYROXINE SODIUM [Concomitant]
     Route: 065
  3. SINGULAIR [Suspect]
     Indication: RHINITIS ALLERGIC
     Route: 048
     Dates: start: 20110101
  4. FAMOTIDINE [Concomitant]
     Route: 065
  5. ZYRTEC [Concomitant]
     Route: 065
  6. SINGULAIR [Suspect]
     Indication: ASTHMA
     Route: 048
     Dates: start: 20110101

REACTIONS (3)
  - THROMBOCYTOPENIA [None]
  - LUPUS-LIKE SYNDROME [None]
  - HEPATIC ENZYME INCREASED [None]
